FAERS Safety Report 19157034 (Version 1)
Quarter: 2021Q2

REPORT INFORMATION
  Report Type: Spontaneous
  Country: US (occurrence: US)
  Receive Date: 20210418
  Receipt Date: 20210418
  Transmission Date: 20210717
  Serious: Yes (Life-Threatening, Hospitalization)
  Sender: FDA-Public Use
  Company Number: None

PATIENT
  Age: 23 Year
  Sex: Female
  Weight: 83.92 kg

DRUGS (1)
  1. NEXPLANON [Suspect]
     Active Substance: ETONOGESTREL
     Dates: start: 20090703, end: 20120731

REACTIONS (4)
  - Haemorrhage [None]
  - Abdominal pain [None]
  - Heavy menstrual bleeding [None]
  - Gait disturbance [None]

NARRATIVE: CASE EVENT DATE: 20120715
